FAERS Safety Report 13741574 (Version 7)
Quarter: 2018Q3

REPORT INFORMATION
  Report Type: Spontaneous
  Country: US (occurrence: US)
  Receive Date: 20170711
  Receipt Date: 20180702
  Transmission Date: 20181010
  Serious: Yes (Other)
  Sender: FDA-Public Use
  Company Number: US-PFIZER INC-2017295544

PATIENT
  Age: 64 Year
  Sex: Female
  Weight: 46 kg

DRUGS (7)
  1. LETROZOLE. [Suspect]
     Active Substance: LETROZOLE
     Indication: METASTASES TO LUNG
     Dosage: 2.5 MG, ONCE DAILY
     Route: 048
  2. LETROZOLE. [Suspect]
     Active Substance: LETROZOLE
     Dosage: UNK
  3. LETROZOLE. [Suspect]
     Active Substance: LETROZOLE
     Dosage: UNK
  4. IBRANCE [Suspect]
     Active Substance: PALBOCICLIB
     Indication: METASTASES TO LUNG
     Dosage: 125 MG, CYCLIC (ONE CAPSULE DAILY FOR 21 DAYS AND THEN OFF FOR 7 DAYS)
     Route: 048
     Dates: start: 201705
  5. LETROZOLE. [Suspect]
     Active Substance: LETROZOLE
     Dosage: 2.5 MG, ONCE DAILY
     Route: 048
  6. LETROZOLE. [Suspect]
     Active Substance: LETROZOLE
     Dosage: UNK
  7. LETROZOLE. [Suspect]
     Active Substance: LETROZOLE
     Dosage: UNK

REACTIONS (22)
  - Pain [Recovering/Resolving]
  - Hunger [Unknown]
  - Depression [Unknown]
  - Fatigue [Unknown]
  - Weight decreased [Unknown]
  - Visual impairment [Unknown]
  - Blood count abnormal [Unknown]
  - Uterine spasm [Unknown]
  - Neutropenia [Unknown]
  - Diarrhoea [Recovering/Resolving]
  - Muscle spasms [Recovered/Resolved]
  - Dyspnoea [Unknown]
  - White blood cell count decreased [Unknown]
  - Nasopharyngitis [Unknown]
  - Emotional distress [Unknown]
  - Contusion [Unknown]
  - Laboratory test abnormal [Unknown]
  - Red blood cell count decreased [Unknown]
  - Movement disorder [Unknown]
  - Haemoglobin decreased [Not Recovered/Not Resolved]
  - Cardiac disorder [Unknown]
  - Neoplasm progression [Unknown]

NARRATIVE: CASE EVENT DATE: 201706
